FAERS Safety Report 6741362-X (Version None)
Quarter: 2010Q2

REPORT INFORMATION
  Report Type: 
  Country: None (occurrence: None)
  Receive Date: 20100524
  Receipt Date: 20100513
  Transmission Date: 20101027
  Serious: Yes (Hospitalization)
  Sender: FDA-Public Use
  Company Number: 588481

PATIENT
  Age: 74 Year
  Sex: Female
  Weight: 77.1 kg

DRUGS (10)
  1. MORPHINE SULFATE [Suspect]
     Indication: INCISION SITE PAIN
     Dosage: 2 MG BID, INTRAVENOUS (NOT OTHERWISE SPECIFIED)
     Route: 042
     Dates: start: 20100406, end: 20100407
  2. CARBIDOPA AND LEVODOPA [Suspect]
     Indication: PARKINSON'S DISEASE
     Dosage: 4.1 MILLILITRE(S),  1 HOUR GASTROENTERAL USE
     Dates: start: 20100330
  3. CYCANOCOBALAMIN [Concomitant]
  4. ESOMEPRAZOLE MAGNESIUM [Concomitant]
  5. METRONODAZOLE SODIUM [Concomitant]
  6. CYCLOBENAZAPRINE HYDROCHLORIDE [Concomitant]
  7. GENTAMICIN SULFATE [Concomitant]
  8. COLECALIFEROL [Concomitant]
  9. MULTIVITAMINS, OTHER COMBINATION [Concomitant]
  10. OMEGA-3 TRIGLYCERIDS [Concomitant]

REACTIONS (2)
  - POSTOPERATIVE ILEUS [None]
  - VOMITING [None]
